FAERS Safety Report 5728677-9 (Version None)
Quarter: 2008Q2

REPORT INFORMATION
  Report Type: 
  Country: None (occurrence: None)
  Receive Date: 20080430
  Receipt Date: 20080110
  Transmission Date: 20081010
  Serious: No
  Sender: FDA-Public Use
  Company Number: 2008PV033935

PATIENT
  Age: 66 Year
  Sex: Female
  Weight: 124.7392 kg

DRUGS (6)
  1. SYMLIN [Suspect]
     Indication: TYPE 2 DIABETES MELLITUS
     Dosage: 30 MCG;BID;SC, 60 MCG;BID;SC, 20 MCG;BID;SC
     Route: 058
     Dates: start: 20050101, end: 20050101
  2. SYMLIN [Suspect]
     Indication: TYPE 2 DIABETES MELLITUS
     Dosage: 30 MCG;BID;SC, 60 MCG;BID;SC, 20 MCG;BID;SC
     Route: 058
     Dates: start: 20050101, end: 20070101
  3. SYMLIN [Suspect]
     Indication: TYPE 2 DIABETES MELLITUS
     Dosage: 30 MCG;BID;SC, 60 MCG;BID;SC, 20 MCG;BID;SC
     Route: 058
     Dates: start: 20070101
  4. HUMALOG [Concomitant]
  5. LANTUS [Concomitant]
  6. METFORMIN [Concomitant]

REACTIONS (1)
  - NAUSEA [None]
